FAERS Safety Report 21288119 (Version 1)
Quarter: 2022Q3

REPORT INFORMATION
  Report Type: Spontaneous
  Country: US (occurrence: US)
  Receive Date: 20220902
  Receipt Date: 20220902
  Transmission Date: 20221027
  Serious: No
  Sender: FDA-Public Use
  Company Number: US-ABBVIE-22K-163-4471162-00

PATIENT
  Sex: Male
  Weight: 85 kg

DRUGS (3)
  1. LUPRON [Suspect]
     Active Substance: LEUPROLIDE ACETATE
     Indication: Prostate cancer
     Route: 030
     Dates: start: 20220210, end: 2022
  2. LUPRON [Suspect]
     Active Substance: LEUPROLIDE ACETATE
     Route: 030
     Dates: start: 20220512
  3. ENZALUTAMIDE [Suspect]
     Active Substance: ENZALUTAMIDE
     Indication: Prostate cancer
     Route: 048
     Dates: start: 20220303

REACTIONS (16)
  - Abnormal dreams [Unknown]
  - Nasal congestion [Unknown]
  - Sluggishness [Unknown]
  - Ear congestion [Unknown]
  - Dry skin [Unknown]
  - Rhinorrhoea [Unknown]
  - Anxiety [Unknown]
  - Fatigue [Unknown]
  - Rash pruritic [Unknown]
  - Back pain [Unknown]
  - Sleep disorder [Unknown]
  - Hot flush [Unknown]
  - Nervousness [Unknown]
  - Arthralgia [Unknown]
  - Musculoskeletal stiffness [Unknown]
  - Urticaria [Unknown]

NARRATIVE: CASE EVENT DATE: 20220101
